FAERS Safety Report 5060974-5 (Version None)
Quarter: 2006Q3

REPORT INFORMATION
  Report Type: 
  Country: None (occurrence: None)
  Receive Date: 20060720
  Receipt Date: 20060710
  Transmission Date: 20061208
  Serious: Yes (Other)
  Sender: FDA-Public Use
  Company Number: 227247

PATIENT

DRUGS (1)
  1. NUTROPIN [Suspect]

REACTIONS (3)
  - HAND FRACTURE [None]
  - HEADACHE [None]
  - OSTEOPENIA [None]
